FAERS Safety Report 24317976 (Version 1)
Quarter: 2024Q3

REPORT INFORMATION
  Report Type: Report from Study
  Country: US (occurrence: US)
  Receive Date: 20240913
  Receipt Date: 20240913
  Transmission Date: 20241017
  Serious: Yes (Other)
  Sender: ABBVIE
  Company Number: US-ABBVIE-5919532

PATIENT
  Sex: Female

DRUGS (2)
  1. HUMIRA [Suspect]
     Active Substance: ADALIMUMAB
     Indication: Acne
     Dosage: INJECT 160 MG (2 INYECTO RES) SUBCUTA NEOUSLY ON DAY 1, THEN INJECT 80 MG (1 INYECTOR) EVERY 2 WE...
     Route: 058
     Dates: start: 202408
  2. HUMIRA [Suspect]
     Active Substance: ADALIMUMAB
     Indication: Hidradenitis

REACTIONS (5)
  - Blindness transient [Unknown]
  - Headache [Unknown]
  - Mood altered [Unknown]
  - Personality change [Unknown]
  - Nausea [Unknown]

NARRATIVE: CASE EVENT DATE: 20240101
